FAERS Safety Report 12475098 (Version 1)
Quarter: 2016Q2

REPORT INFORMATION
  Report Type: Spontaneous
  Country: CN (occurrence: CN)
  Receive Date: 20160617
  Receipt Date: 20160617
  Transmission Date: 20160815
  Serious: Yes (Other)
  Sender: FDA-Public Use
  Company Number: CN-BEH-2016062196

PATIENT
  Sex: Male

DRUGS (2)
  1. ALBURX [Suspect]
     Active Substance: ALBUMIN HUMAN
     Indication: HEPATIC CANCER
     Route: 065
  2. ALBURX [Suspect]
     Active Substance: ALBUMIN HUMAN
     Indication: ASCITES

REACTIONS (2)
  - Suspected counterfeit product [Unknown]
  - No adverse event [Unknown]
